FAERS Safety Report 11540705 (Version 1)
Quarter: 2015Q3

REPORT INFORMATION
  Report Type: Spontaneous
  Country: US (occurrence: US)
  Receive Date: 20150923
  Receipt Date: 20150923
  Transmission Date: 20151125
  Serious: No
  Sender: FDA-Public Use
  Company Number: US-GLAXOSMITHKLINE-US2015GSK134827

PATIENT
  Sex: Female

DRUGS (1)
  1. VOTRIENT [Suspect]
     Active Substance: PAZOPANIB HYDROCHLORIDE
     Indication: RENAL CANCER
     Dosage: 800 MG, QD

REACTIONS (10)
  - Malaise [Unknown]
  - Arthralgia [Unknown]
  - Tremor [Unknown]
  - Insomnia [Unknown]
  - Fatigue [Unknown]
  - Hypersomnia [Recovered/Resolved]
  - Depression [Unknown]
  - Nausea [Recovering/Resolving]
  - Ageusia [Unknown]
  - Intentional product use issue [Unknown]
